FAERS Safety Report 15490498 (Version 16)
Quarter: 2021Q3

REPORT INFORMATION
  Report Type: Spontaneous
  Country: GB (occurrence: GB)
  Receive Date: 20181011
  Receipt Date: 20210917
  Transmission Date: 20211014
  Serious: Yes (Death, Hospitalization, Disabling, Other)
  Sender: FDA-Public Use
  Company Number: PHHY2018GB120635

PATIENT
  Age: 76 Year
  Sex: Male
  Weight: 69 kg

DRUGS (69)
  1. CEFUROXIME. [Suspect]
     Active Substance: CEFUROXIME
     Indication: PRODUCT USED FOR UNKNOWN INDICATION
     Dosage: UNK
     Route: 065
  2. PENICILLIN [Suspect]
     Active Substance: PENICILLIN
     Indication: PRODUCT USED FOR UNKNOWN INDICATION
     Dosage: UNK
     Route: 065
  3. ALLOPURINOL. [Concomitant]
     Active Substance: ALLOPURINOL
     Indication: PRODUCT USED FOR UNKNOWN INDICATION
     Dosage: 100 MG, QD
     Route: 048
  4. BETAHISTINE [Concomitant]
     Active Substance: BETAHISTINE
     Indication: PRODUCT USED FOR UNKNOWN INDICATION
     Dosage: 8 MG, MONTHLY
     Route: 048
  5. CHOLECALCIFEROL [Concomitant]
     Active Substance: CHOLECALCIFEROL
     Indication: PRODUCT USED FOR UNKNOWN INDICATION
     Dosage: 20 NG, QD
     Route: 048
  6. CHOLECALCIFEROL [Concomitant]
     Active Substance: CHOLECALCIFEROL
     Dosage: 20 NG, QMO
     Route: 048
  7. FUROSEMIDE. [Concomitant]
     Active Substance: FUROSEMIDE
     Dosage: 40 MG, UNK 12 PM
     Route: 048
  8. SENNA [Concomitant]
     Active Substance: SENNA LEAF\SENNOSIDES\SENNOSIDES A AND B
     Indication: PRODUCT USED FOR UNKNOWN INDICATION
     Dosage: 5 MG, QD
     Route: 048
  9. DEXTROSE. [Concomitant]
     Active Substance: DEXTROSE
     Indication: PRODUCT USED FOR UNKNOWN INDICATION
     Dosage: UNK
     Route: 042
     Dates: end: 20180130
  10. COLECALCIFEROL [Concomitant]
     Active Substance: CHOLECALCIFEROL
     Indication: PRODUCT USED FOR UNKNOWN INDICATION
     Dosage: 20 NANOGRAM, MONTHLY
     Route: 048
  11. TACROLIMUS. [Interacting]
     Active Substance: TACROLIMUS
     Indication: RENAL TRANSPLANT
  12. ADOPORT [Suspect]
     Active Substance: TACROLIMUS
     Indication: RENAL TRANSPLANT
     Dosage: 1.5 MILLIGRAM, BID
     Route: 048
     Dates: start: 20100127, end: 20180130
  13. ADOPORT [Suspect]
     Active Substance: TACROLIMUS
     Dosage: 2 MILLIGRAM, BID
     Route: 065
     Dates: start: 20180128
  14. ADOPORT [Suspect]
     Active Substance: TACROLIMUS
     Dosage: 15 MG, BID
     Route: 065
  15. ADOPORT [Suspect]
     Active Substance: TACROLIMUS
     Dosage: 15 MILLIGRAM, BID
     Route: 048
  16. ADOPORT [Suspect]
     Active Substance: TACROLIMUS
     Dosage: 2 MILLIGRAM, BID
     Route: 065
     Dates: start: 20180128
  17. ADOPORT [Suspect]
     Active Substance: TACROLIMUS
     Dosage: 1.5 MILLIGRAM, BID
     Route: 048
     Dates: start: 20100127
  18. EPLERENONE. [Concomitant]
     Active Substance: EPLERENONE
     Indication: PRODUCT USED FOR UNKNOWN INDICATION
     Dosage: 25 MG, MONTHLY
     Route: 048
  19. EPLERENONE. [Concomitant]
     Active Substance: EPLERENONE
     Dosage: 25 MILLIGRAM, QD, MORNING
     Route: 048
  20. PREDNISOLONE. [Concomitant]
     Active Substance: PREDNISOLONE
     Dosage: 5 MG, QMO
     Route: 048
  21. GLYCERYL TRINITRATE [Concomitant]
     Active Substance: NITROGLYCERIN
     Indication: PRODUCT USED FOR UNKNOWN INDICATION
     Dosage: UNK
     Route: 065
  22. CLARITHROMYCIN. [Interacting]
     Active Substance: CLARITHROMYCIN
     Indication: MEDIASTINITIS
     Dosage: 1000 MILLIGRAM, QD
     Route: 042
     Dates: start: 20180127, end: 20180131
  23. ADOPORT [Suspect]
     Active Substance: TACROLIMUS
     Dosage: 2 MG, BID
     Route: 048
     Dates: start: 20180127
  24. OMEPRAZOLE. [Concomitant]
     Active Substance: OMEPRAZOLE
     Indication: PRODUCT USED FOR UNKNOWN INDICATION
     Dosage: 20 MG, QD (CHEMO IBERICA)
     Route: 048
  25. OMEPRAZOLE. [Concomitant]
     Active Substance: OMEPRAZOLE
     Dosage: 20 MG, QD (MORNING)
     Route: 048
  26. FUROSEMIDE. [Concomitant]
     Active Substance: FUROSEMIDE
     Indication: PRODUCT USED FOR UNKNOWN INDICATION
     Dosage: 80 MILLIGRAM, QD
     Route: 048
  27. GLICLAZIDE [Concomitant]
     Active Substance: GLICLAZIDE
     Dosage: 40 MILLIGRAM, QD
     Route: 048
  28. GTN [Concomitant]
     Active Substance: NITROGLYCERIN
     Indication: PRODUCT USED FOR UNKNOWN INDICATION
     Dosage: UNK
     Route: 065
  29. GLUCOGEL [Concomitant]
     Dosage: UNK
     Route: 065
  30. BISOPROLOL [Suspect]
     Active Substance: BISOPROLOL
     Dosage: UNK
     Route: 065
  31. TACROLIMUS. [Interacting]
     Active Substance: TACROLIMUS
     Indication: PROPHYLAXIS AGAINST TRANSPLANT REJECTION
     Dosage: 3 MG, QD (1.5 MG, BID)
     Route: 048
     Dates: start: 20180127, end: 20180131
  32. ENVARSUS XR [Interacting]
     Active Substance: TACROLIMUS
     Indication: PRODUCT USED FOR UNKNOWN INDICATION
     Dosage: UNK
     Route: 065
  33. ALFACALCIDOL [Concomitant]
     Active Substance: ALFACALCIDOL
     Indication: PRODUCT USED FOR UNKNOWN INDICATION
     Dosage: 500 NANOGRAM, QD
     Route: 048
  34. GLICLAZIDE [Concomitant]
     Active Substance: GLICLAZIDE
     Indication: PRODUCT USED FOR UNKNOWN INDICATION
     Dosage: 40 MILLIGRAM, MONTHLY
     Route: 048
  35. PREDNISOLONE. [Concomitant]
     Active Substance: PREDNISOLONE
     Indication: PRODUCT USED FOR UNKNOWN INDICATION
     Dosage: 5 MILLIGRAM, AM
     Route: 048
  36. PREDNISOLONE. [Concomitant]
     Active Substance: PREDNISOLONE
     Dosage: 5 MILLIGRAM, MONTHLY
     Route: 048
     Dates: start: 20180127
  37. SALBUTAMOL [Concomitant]
     Active Substance: ALBUTEROL
     Indication: PRODUCT USED FOR UNKNOWN INDICATION
     Dosage: UNK
     Route: 065
  38. GLUCOGEL [Concomitant]
     Indication: PRODUCT USED FOR UNKNOWN INDICATION
     Dosage: UNK
     Route: 065
     Dates: start: 20180130
  39. DEXTROSE. [Concomitant]
     Active Substance: DEXTROSE
     Indication: PRODUCT USED FOR UNKNOWN INDICATION
     Dosage: UNK
     Route: 065
     Dates: start: 20180130
  40. HYDROCORTISONE. [Concomitant]
     Active Substance: HYDROCORTISONE
     Indication: PRODUCT USED FOR UNKNOWN INDICATION
     Dosage: 50 MG, TID
     Route: 042
  41. CLARITHROMYCIN. [Suspect]
     Active Substance: CLARITHROMYCIN
     Indication: PNEUMONIA
     Dosage: 500 MILLIGRAM, BID
     Route: 042
     Dates: start: 20180127, end: 20180131
  42. BISOPROLOL [Suspect]
     Active Substance: BISOPROLOL
     Indication: PRODUCT USED FOR UNKNOWN INDICATION
     Dosage: UNK
     Route: 065
  43. CEFUROXIME. [Suspect]
     Active Substance: CEFUROXIME
     Indication: PRODUCT USED FOR UNKNOWN INDICATION
     Dosage: UNK
     Route: 042
  44. ENVARSUS XR [Interacting]
     Active Substance: TACROLIMUS
     Indication: PROPHYLAXIS AGAINST TRANSPLANT REJECTION
     Dosage: 3 MG, QD (1.5 MG, BID)
     Route: 048
     Dates: start: 20180127, end: 20180131
  45. BETAHISTINE [Concomitant]
     Active Substance: BETAHISTINE
     Dosage: 8 MILLIGRAM, QD, MORNING
     Route: 048
  46. GLUCOGEL [Concomitant]
     Indication: PRODUCT USED FOR UNKNOWN INDICATION
     Dosage: UNK
     Route: 065
  47. GLUCOGEL [Concomitant]
     Dosage: UNK
     Route: 065
  48. HYDROCORTISONE. [Concomitant]
     Active Substance: HYDROCORTISONE
     Dosage: 50 MILLIGRAM, TID
     Route: 042
     Dates: start: 20180201
  49. LAXATIVE [Concomitant]
     Active Substance: UNSPECIFIED INGREDIENT
     Indication: PRODUCT USED FOR UNKNOWN INDICATION
     Dosage: UNK
     Route: 065
  50. CLARITHROMYCIN. [Interacting]
     Active Substance: CLARITHROMYCIN
     Indication: LOWER RESPIRATORY TRACT INFECTION
  51. ADOPORT [Suspect]
     Active Substance: TACROLIMUS
     Indication: PROPHYLAXIS AGAINST TRANSPLANT REJECTION
     Dosage: 1.5 MG, BID
     Route: 048
     Dates: start: 20180127
  52. ENVARSUS XR [Interacting]
     Active Substance: TACROLIMUS
     Indication: RENAL TRANSPLANT
     Dosage: UNK
     Route: 065
  53. OMEPRAZOLE. [Concomitant]
     Active Substance: OMEPRAZOLE
     Dosage: 20 MG, MONTHLY
     Route: 048
  54. OMEPRAZOLE. [Concomitant]
     Active Substance: OMEPRAZOLE
     Dosage: 20 MG, QMO
     Route: 048
  55. OMEPRAZOLE. [Concomitant]
     Active Substance: OMEPRAZOLE
     Dosage: 20 MILLIGRAM, QD, MORNING
     Route: 048
  56. FUROSEMIDE. [Concomitant]
     Active Substance: FUROSEMIDE
     Dosage: 80MG MORNING, 40MG 12PM
     Route: 048
  57. GLICLAZIDE [Concomitant]
     Active Substance: GLICLAZIDE
     Dosage: 40 MILLIGRAM, QD, MORNING
     Route: 048
  58. SENNA [Concomitant]
     Active Substance: SENNA LEAF\SENNOSIDES\SENNOSIDES A AND B
     Dosage: 15 MG, QD, NIGHT
     Route: 048
  59. SALBUTAMOL [Concomitant]
     Active Substance: ALBUTEROL
     Indication: PRODUCT USED FOR UNKNOWN INDICATION
     Dosage: UNK
     Route: 065
  60. SALBUTAMOL [Concomitant]
     Active Substance: ALBUTEROL
     Dosage: UNK
     Route: 065
  61. GTN [Concomitant]
     Active Substance: NITROGLYCERIN
     Dosage: UNK
     Route: 065
  62. GLUCAGON. [Concomitant]
     Active Substance: GLUCAGON
     Indication: PRODUCT USED FOR UNKNOWN INDICATION
     Dosage: UNK
     Route: 030
  63. HYDROCORTISONE. [Concomitant]
     Active Substance: HYDROCORTISONE
     Indication: PRODUCT USED FOR UNKNOWN INDICATION
     Dosage: 150 MILLIGRAM, TID
     Route: 042
     Dates: start: 20180201
  64. COLECALCIFEROL [Concomitant]
     Active Substance: CHOLECALCIFEROL
     Dosage: 20 NANOGRAM, QD, MORNING
     Route: 048
  65. ADOPORT [Suspect]
     Active Substance: TACROLIMUS
     Dosage: 1.5 MILLIGRAM, BID
     Route: 048
     Dates: start: 20100127, end: 20180130
  66. ADOPORT [Suspect]
     Active Substance: TACROLIMUS
     Dosage: 15 MILLIGRAM, BID
     Route: 048
  67. GTN [Concomitant]
     Active Substance: NITROGLYCERIN
     Indication: PRODUCT USED FOR UNKNOWN INDICATION
     Dosage: UNK
     Route: 065
  68. GLUCAGON. [Concomitant]
     Active Substance: GLUCAGON
     Indication: PRODUCT USED FOR UNKNOWN INDICATION
     Dosage: UNK
     Route: 030
     Dates: start: 20180130
  69. GLYCERYL TRINITRATE [Concomitant]
     Active Substance: NITROGLYCERIN
     Dosage: UNK
     Route: 065

REACTIONS (33)
  - Immunosuppressant drug level increased [Fatal]
  - Hypoglycaemia [Unknown]
  - Cardiac failure congestive [Fatal]
  - Acute kidney injury [Fatal]
  - Inflammatory marker increased [Unknown]
  - Lung consolidation [Unknown]
  - Pyrexia [Unknown]
  - Cough [Unknown]
  - Transplant failure [Not Recovered/Not Resolved]
  - Lower respiratory tract infection [Unknown]
  - Myocardial ischaemia [Fatal]
  - Multimorbidity [Unknown]
  - Toxicity to various agents [Not Recovered/Not Resolved]
  - Soft tissue mass [Unknown]
  - Productive cough [Unknown]
  - Cardiomegaly [Unknown]
  - Pleural effusion [Unknown]
  - Rash [Unknown]
  - Labelled drug-drug interaction medication error [Fatal]
  - Sepsis [Not Recovered/Not Resolved]
  - Oesophageal perforation [Not Recovered/Not Resolved]
  - Dysphagia [Unknown]
  - Rales [Unknown]
  - Superinfection [Unknown]
  - Malaise [Unknown]
  - Oesophageal carcinoma [Fatal]
  - Haemoptysis [Unknown]
  - Swelling [Unknown]
  - Drug level increased [Recovered/Resolved with Sequelae]
  - Ascites [Unknown]
  - Drug interaction [Not Recovered/Not Resolved]
  - Pneumonia [Unknown]
  - Renal impairment [Unknown]

NARRATIVE: CASE EVENT DATE: 20180118
